FAERS Safety Report 16487604 (Version 1)
Quarter: 2019Q3

REPORT INFORMATION
  Report Type: Spontaneous
  Country: US (occurrence: US)
  Receive Date: 20190626
  Receipt Date: 20190626
  Transmission Date: 20191004
  Serious: No
  Sender: FDA-Public Use
  Company Number: None

PATIENT
  Age: 51 Year
  Sex: Male
  Weight: 100.8 kg

DRUGS (2)
  1. AMLODINPINE BESYLATE 5MG TABLETS [Suspect]
     Active Substance: AMLODIPINE BESYLATE
     Indication: HYPERTENSION
     Dosage: ?          QUANTITY:30 TABLET(S);?
     Route: 048
     Dates: start: 20190617, end: 20190622
  2. VITAMIN-D3 [Concomitant]

REACTIONS (7)
  - Headache [None]
  - Abdominal pain [None]
  - Tinnitus [None]
  - Tremor [None]
  - Asthenia [None]
  - Chills [None]
  - Urticaria [None]

NARRATIVE: CASE EVENT DATE: 20190623
